FAERS Safety Report 24860756 (Version 1)
Quarter: 2025Q1

REPORT INFORMATION
  Report Type: Spontaneous
  Country: US (occurrence: US)
  Receive Date: 20250120
  Receipt Date: 20250120
  Transmission Date: 20250408
  Serious: Yes (Hospitalization, Other)
  Sender: ZYDUS PHARM
  Company Number: US-CADILA HEALTHCARE LIMITED-US-ZYDUS-117965

PATIENT

DRUGS (1)
  1. LENALIDOMIDE [Suspect]
     Active Substance: LENALIDOMIDE
     Indication: Plasma cell myeloma
     Route: 048
     Dates: start: 20241221, end: 20241223

REACTIONS (6)
  - Fall [Recovered/Resolved]
  - Lumbar vertebral fracture [Unknown]
  - Coma [Unknown]
  - Cerebrovascular accident [Unknown]
  - Metastasis [Unknown]
  - Dizziness [Unknown]

NARRATIVE: CASE EVENT DATE: 20241201
